FAERS Safety Report 4392513-6 (Version None)
Quarter: 2004Q3

REPORT INFORMATION
  Report Type: 
  Country: None (occurrence: None)
  Receive Date: 20040702
  Receipt Date: 20040616
  Transmission Date: 20050211
  Serious: Yes (Hospitalization)
  Sender: FDA-Public Use
  Company Number: 8259

PATIENT
  Age: 64 Year
  Sex: Male

DRUGS (7)
  1. FLUOROURACIL [Suspect]
     Indication: COLON CANCER
     Dosage: 2000 MG PER_ CYCLE IV
     Route: 042
     Dates: start: 20010328
  2. IRINOTECAN [Suspect]
     Indication: COLON CANCER
     Dosage: 360 MG PER _CYCLE IV
     Route: 042
     Dates: start: 20010328
  3. CALCIUM FOLINATE [Suspect]
     Indication: COLON CANCER
     Dosage: 400 MG PER_CYCLE IV
     Route: 042
     Dates: start: 20010328
  4. LOPERAMIDE HCL [Concomitant]
  5. SENNA [Concomitant]
  6. COLCHICINE [Concomitant]
  7. PYRIDOXINE HCL [Concomitant]

REACTIONS (1)
  - ANAEMIA [None]
